FAERS Safety Report 10080235 (Version 1)
Quarter: 2014Q2

REPORT INFORMATION
  Report Type: Report from Study
  Country: FR (occurrence: FR)
  Receive Date: 20140415
  Receipt Date: 20140415
  Transmission Date: 20141212
  Serious: Yes (Death)
  Sender: FDA-Public Use
  Company Number: FR-BAXTER-2014BAX019195

PATIENT
  Age: 4 Year
  Sex: Male
  Weight: 10.2 kg

DRUGS (8)
  1. ENDOXAN 1000 MG, POUDRE POUR SOLUTION INJECTABLE [Suspect]
     Indication: RETINOBLASTOMA
     Dosage: DAYS 1-21
     Route: 065
  2. ENDOXAN 1000 MG, POUDRE POUR SOLUTION INJECTABLE [Suspect]
     Indication: NEOPLASM PROGRESSION
  3. VINCRISTINE [Suspect]
     Indication: RETINOBLASTOMA
     Dosage: DAYS 1, 8, 15 AND 22
     Route: 065
  4. VINCRISTINE [Suspect]
     Indication: NEOPLASM PROGRESSION
  5. METHOTREXATE [Suspect]
     Indication: RETINOBLASTOMA
     Dosage: ON DAYS 21-42
     Route: 065
  6. METHOTREXATE [Suspect]
     Indication: NEOPLASM PROGRESSION
  7. VALPROIC ACID [Suspect]
     Indication: RETINOBLASTOMA
     Route: 065
  8. VALPROIC ACID [Suspect]
     Indication: NEOPLASM PROGRESSION

REACTIONS (1)
  - Disease progression [Fatal]
